FAERS Safety Report 21348253 (Version 1)
Quarter: 2022Q3

REPORT INFORMATION
  Report Type: Spontaneous
  Country: US (occurrence: None)
  Receive Date: 20220916
  Receipt Date: 20220916
  Transmission Date: 20221026
  Serious: Yes (Hospitalization)
  Sender: FDA-Public Use
  Company Number: None

PATIENT
  Age: 64 Year
  Sex: Female

DRUGS (1)
  1. SUNITINIB [Suspect]
     Active Substance: SUNITINIB
     Route: 048

REACTIONS (5)
  - Kidney infection [None]
  - Sepsis [None]
  - Thyroid disorder [None]
  - Yellow skin [None]
  - Chromaturia [None]

NARRATIVE: CASE EVENT DATE: 20220916
